FAERS Safety Report 25499159 (Version 2)
Quarter: 2025Q3

REPORT INFORMATION
  Report Type: Report from Study
  Country: GB (occurrence: GB)
  Receive Date: 20250701
  Receipt Date: 20250915
  Transmission Date: 20251020
  Serious: Yes (Other)
  Sender: TAKEDA
  Company Number: GB-TAKEDA-2022TUS064291

PATIENT
  Sex: Female

DRUGS (2)
  1. VEDOLIZUMAB [Suspect]
     Active Substance: VEDOLIZUMAB
     Indication: Colitis
     Dosage: 108 MILLIGRAM, Q2WEEKS
  2. VEDOLIZUMAB [Suspect]
     Active Substance: VEDOLIZUMAB
     Indication: Crohn^s disease
     Dosage: 108 MILLIGRAM, Q2WEEKS

REACTIONS (8)
  - Deafness [Unknown]
  - Labyrinthitis [Unknown]
  - Device difficult to use [Unknown]
  - Injection site extravasation [Unknown]
  - Otitis media [Unknown]
  - Nasal congestion [Unknown]
  - Cough [Unknown]
  - Product administration error [Unknown]
